FAERS Safety Report 26002548 (Version 1)
Quarter: 2025Q4

REPORT INFORMATION
  Report Type: Report from Study
  Country: CA (occurrence: CA)
  Receive Date: 20251105
  Receipt Date: 20251105
  Transmission Date: 20260118
  Serious: Yes (Other)
  Sender: NOVARTIS
  Company Number: CA-002147023-NVSC2025CA170077

PATIENT
  Sex: Female

DRUGS (1)
  1. GILENYA [Suspect]
     Active Substance: FINGOLIMOD HYDROCHLORIDE
     Indication: Relapsing-remitting multiple sclerosis
     Dosage: UNK
     Route: 065
     Dates: start: 201307, end: 2016

REACTIONS (4)
  - Optic neuritis [Unknown]
  - Sensory disturbance [Unknown]
  - Neuralgia [Unknown]
  - Sensorimotor disorder [Unknown]

NARRATIVE: CASE EVENT DATE: 20130101
